FAERS Safety Report 5701628-9 (Version None)
Quarter: 2008Q2

REPORT INFORMATION
  Report Type: 
  Country: None (occurrence: None)
  Receive Date: 20080409
  Receipt Date: 20080409
  Transmission Date: 20081010
  Serious: No
  Sender: FDA-Public Use
  Company Number: None

PATIENT
  Age: 14 Year
  Sex: Male
  Weight: 56 kg

DRUGS (2)
  1. RISPERIDONE [Suspect]
     Dosage: 1.5 MG DAILY PO
     Route: 048
  2. ATOMEXETINE  40 MG [Suspect]
     Dosage: 40 MG DAILY PO
     Route: 048

REACTIONS (1)
  - NEUTROPENIA [None]
